FAERS Safety Report 10175222 (Version 1)
Quarter: 2014Q2

REPORT INFORMATION
  Report Type: Spontaneous
  Country: US (occurrence: US)
  Receive Date: 20140515
  Receipt Date: 20140515
  Transmission Date: 20141212
  Serious: No
  Sender: FDA-Public Use
  Company Number: US-VIVUS-2014V1000108

PATIENT
  Sex: Female
  Weight: 71.73 kg

DRUGS (5)
  1. QSYMIA 7.5MG/46MG [Suspect]
     Indication: WEIGHT DECREASED
     Route: 048
     Dates: start: 201310, end: 201311
  2. QSYMIA 11.25MG/69MG [Suspect]
     Indication: WEIGHT DECREASED
     Route: 048
  3. QSYMIA 15MG/92MG [Suspect]
     Indication: WEIGHT DECREASED
     Route: 048
  4. IRON [Concomitant]
     Indication: MINERAL SUPPLEMENTATION
     Dosage: START AUG-SEP-2003
     Route: 048
  5. SYNTHROID [Concomitant]
     Indication: HYPOTHYROIDISM
     Dosage: SINCE AGE 23
     Route: 048

REACTIONS (1)
  - Dysgeusia [Not Recovered/Not Resolved]
